FAERS Safety Report 13288638 (Version 2)
Quarter: 2018Q4

REPORT INFORMATION
  Report Type: Spontaneous
  Country: US (occurrence: US)
  Receive Date: 20170302
  Receipt Date: 20181221
  Transmission Date: 20190204
  Serious: No
  Sender: FDA-Public Use
  Company Number: US-PFIZER INC-2015325091

PATIENT
  Age: 60 Year
  Sex: Female
  Weight: 64.41 kg

DRUGS (18)
  1. TOPAMAX [Concomitant]
     Active Substance: TOPIRAMATE
     Dosage: 50 MG, 2X/DAY
  2. MAGNESIUM CITRATE. [Concomitant]
     Active Substance: MAGNESIUM CITRATE
     Dosage: 400 MG, DAILY
  3. RELPAX [Suspect]
     Active Substance: ELETRIPTAN HYDROBROMIDE
     Dosage: 40 MG, UNK (USUALLY JUST ONCE A DAY, BUT HAVE TAKEN IT TWICE A DAY)
     Route: 048
  4. NORCO [Concomitant]
     Active Substance: ACETAMINOPHEN\HYDROCODONE BITARTRATE
     Dosage: UNK, AS NEEDED (10/325 MG)
  5. PREMPRO [Concomitant]
     Active Substance: ESTROGENS, CONJUGATED\MEDROXYPROGESTERONE ACETATE
     Dosage: UNK, DAILY (.3-1.5 MG)
  6. MELATONIN [Concomitant]
     Active Substance: MELATONIN
     Dosage: 3 MG, DAILY
  7. ALLEGRA [Concomitant]
     Active Substance: FEXOFENADINE HYDROCHLORIDE
     Dosage: 180 MG, DAILY
  8. RELPAX [Suspect]
     Active Substance: ELETRIPTAN HYDROBROMIDE
     Indication: MIGRAINE
     Dosage: 40 MG, 2X/DAY (MAX. 4/WEEK)
     Route: 048
  9. FLONASE /00908302/ [Concomitant]
     Active Substance: MOMETASONE FUROATE
     Dosage: UNK, DAILY (2 SPRAYS IN EACH NOSTRIL)
  10. LEVOTHYROXINE. [Concomitant]
     Active Substance: LEVOTHYROXINE
     Dosage: 150 ?G, DAILY
  11. REGLAN [Concomitant]
     Active Substance: METOCLOPRAMIDE HYDROCHLORIDE
     Dosage: 10 MG, 3X/DAY (DAILY)
  12. ZOLOFT [Concomitant]
     Active Substance: SERTRALINE HYDROCHLORIDE
     Indication: DEPRESSION
     Dosage: 50 MG, 1X/DAY
     Route: 048
  13. RELPAX [Suspect]
     Active Substance: ELETRIPTAN HYDROBROMIDE
     Indication: HEADACHE
     Dosage: 40 MG, SINGLE (SOMETIMES HAD TO REPEAT IT LIKE 4 HOURS WHEN MIGRAINE COMES BACK)
  14. PHENERGAN [Concomitant]
     Active Substance: PROMETHAZINE HYDROCHLORIDE
     Dosage: 25 MG, AS NEEDED
  15. FLEXERIL [Concomitant]
     Active Substance: CYCLOBENZAPRINE HYDROCHLORIDE
     Dosage: 5 MG, AS NEEDED
  16. VALERIAN ROOT /01561603/ [Concomitant]
     Active Substance: VALERIAN
     Dosage: 530 MG, DAILY
  17. RELPAX [Suspect]
     Active Substance: ELETRIPTAN HYDROBROMIDE
     Dosage: 40 MG, UNK [1 PO AT HEADACHE ONSET MAX 2 DOSES A DAY, MAX 2 DOSES OF USE/WEEK]
     Route: 048
  18. KLONOPIN [Concomitant]
     Active Substance: CLONAZEPAM
     Dosage: 3 MG, 2X/DAY

REACTIONS (2)
  - Medication overuse headache [Not Recovered/Not Resolved]
  - Intentional product misuse [Unknown]

NARRATIVE: CASE EVENT DATE: 201701
